FAERS Safety Report 4331733-3 (Version None)
Quarter: 2004Q2

REPORT INFORMATION
  Report Type: 
  Country: None (occurrence: None)
  Receive Date: 20040405
  Receipt Date: 20030505
  Transmission Date: 20050107
  Serious: No
  Sender: FDA-Public Use
  Company Number: US-GLAXOSMITHKLINE-A0407161A

PATIENT
  Age: 50 Year
  Sex: Female

DRUGS (4)
  1. FLOVENT [Suspect]
     Indication: ASTHMA
     Dosage: 1PUFF TWICE PER DAY
     Route: 055
     Dates: start: 20030301
  2. PEPCID [Concomitant]
     Route: 065
  3. PREMARIN [Concomitant]
     Route: 065
  4. ZOCOR [Concomitant]
     Route: 065

REACTIONS (2)
  - APHONIA [None]
  - PHARYNGOLARYNGEAL PAIN [None]
